FAERS Safety Report 6180215-5 (Version None)
Quarter: 2009Q2

REPORT INFORMATION
  Report Type: 
  Country: None (occurrence: None)
  Receive Date: 20090501
  Receipt Date: 20090421
  Transmission Date: 20091009
  Serious: Yes (Death, Hospitalization, Other)
  Sender: FDA-Public Use
  Company Number: 2009AP001630

PATIENT
  Age: 85 Year
  Sex: Female

DRUGS (8)
  1. CLARITHROMYCIN [Suspect]
     Indication: CHRONIC OBSTRUCTIVE PULMONARY DISEASE
     Dosage: 250 MG; PO; BID
     Route: 048
  2. CLARITHROMYCIN [Suspect]
     Indication: CONDITION AGGRAVATED
     Dosage: 250 MG; PO; BID
     Route: 048
  3. AMOXICILLIN [Suspect]
     Indication: CHRONIC OBSTRUCTIVE PULMONARY DISEASE
     Dosage: 500 MG; PO;TID
     Route: 048
  4. AMOXICILLIN [Suspect]
     Indication: CONDITION AGGRAVATED
     Dosage: 500 MG; PO;TID
     Route: 048
  5. FERROUS FUMARATE [Concomitant]
  6. FUROSEMIDE [Concomitant]
  7. PERINDOPRIL ERBUMINE [Concomitant]
  8. RANITIDINE [Concomitant]

REACTIONS (2)
  - DIARRHOEA [None]
  - VOMITING [None]
